FAERS Safety Report 8587370-8 (Version None)
Quarter: 2012Q3

REPORT INFORMATION
  Report Type: 
  Country: None (occurrence: None)
  Receive Date: 20120810
  Receipt Date: 20111005
  Transmission Date: 20120928
  Serious: Yes (Other)
  Sender: FDA-Public Use
  Company Number: US-ASTRAZENECA-2011SE59931

PATIENT
  Age: 86 Year
  Sex: Female
  Weight: 89.8 kg

DRUGS (6)
  1. ARIMIDEX [Suspect]
     Indication: BREAST CANCER
     Route: 048
     Dates: start: 19960101, end: 20010101
  2. ZOMETA [Concomitant]
     Indication: BONE DISORDER
     Dosage: MONTHLY
     Route: 042
     Dates: start: 20110401
  3. ARIMIDEX [Suspect]
     Route: 048
     Dates: start: 20110101
  4. ALLOPURINOL [Concomitant]
     Indication: GOUT
  5. BENICAR HCT [Concomitant]
     Indication: BLOOD PRESSURE ABNORMAL
     Dosage: 40/25
     Dates: start: 20060101
  6. WARFARIN SODIUM [Concomitant]
     Dates: start: 20070101

REACTIONS (5)
  - BREAST CANCER RECURRENT [None]
  - STOMATITIS [None]
  - RHEUMATOID ARTHRITIS [None]
  - DRUG HYPERSENSITIVITY [None]
  - METASTASES TO BONE [None]
